APPROVED DRUG PRODUCT: FLUOXYMESTERONE
Active Ingredient: FLUOXYMESTERONE
Strength: 10MG
Dosage Form/Route: TABLET;ORAL
Application: A088342 | Product #001
Applicant: UPSHER SMITH LABORATORIES LLC
Approved: Oct 21, 1983 | RLD: No | RS: No | Type: DISCN